FAERS Safety Report 8353162-8 (Version None)
Quarter: 2012Q2

REPORT INFORMATION
  Report Type: 
  Country: None (occurrence: None)
  Receive Date: 20120511
  Receipt Date: 20120508
  Transmission Date: 20120825
  Serious: Yes (Other)
  Sender: FDA-Public Use
  Company Number: US-PFIZER INC-2012055534

PATIENT

DRUGS (7)
  1. NEXIUM [Suspect]
     Dosage: UNK
  2. LIPITOR [Suspect]
     Dosage: UNK
  3. FLONASE [Suspect]
     Dosage: UNK
  4. TOPAMAX [Suspect]
     Dosage: UNK
  5. NEURONTIN [Suspect]
     Dosage: UNK
  6. PERCOCET [Suspect]
     Dosage: UNK
  7. CELEXA [Suspect]
     Dosage: UNK

REACTIONS (8)
  - INTERVERTEBRAL DISC PROTRUSION [None]
  - PANIC ATTACK [None]
  - INTERVERTEBRAL DISC DEGENERATION [None]
  - EXOSTOSIS [None]
  - SCIATICA [None]
  - DEPRESSION [None]
  - ANXIETY [None]
  - ARTHRITIS [None]
